FAERS Safety Report 8670400 (Version 4)
Quarter: 2013Q2

REPORT INFORMATION
  Report Type: Report from Study
  Country: US (occurrence: US)
  Receive Date: 20120718
  Receipt Date: 20130612
  Transmission Date: 20140414
  Serious: Yes (Hospitalization, Other)
  Sender: FDA-Public Use
  Company Number: US-CELGENEUS-163-21880-12063850

PATIENT
  Age: 52 Year
  Sex: Female
  Weight: 65.9 kg

DRUGS (43)
  1. REVLIMID [Suspect]
     Indication: PLASMA CELL MYELOMA
     Dosage: 25 MILLIGRAM
     Route: 048
     Dates: start: 20110922, end: 20111106
  2. REVLIMID [Suspect]
     Dosage: 15 MILLIGRAM
     Route: 048
     Dates: start: 20111121, end: 20120322
  3. REVLIMID [Suspect]
     Dosage: 10 MILLIGRAM
     Route: 048
     Dates: start: 20120417, end: 20120701
  4. REVLIMID [Suspect]
     Dosage: 10 MILLIGRAM
     Route: 048
     Dates: start: 20120709, end: 20120726
  5. REVLIMID [Suspect]
     Route: 048
     Dates: start: 20120806, end: 20120808
  6. REVLIMID [Suspect]
     Route: 048
     Dates: end: 20130203
  7. DEXAMETHASONE [Suspect]
     Indication: PLASMA CELL MYELOMA
     Dosage: 40 MILLIGRAM
     Route: 065
     Dates: start: 20110922, end: 20111114
  8. DEXAMETHASONE [Suspect]
     Dosage: 20 MILLIGRAM
     Route: 065
     Dates: start: 20111121, end: 20120315
  9. DEXAMETHASONE [Suspect]
     Dosage: 12 MILLIGRAM
     Route: 065
     Dates: start: 20120416, end: 20120625
  10. DEXAMETHASONE [Suspect]
     Dosage: 12 MILLIGRAM
     Route: 065
     Dates: start: 20120709, end: 20120716
  11. CARFILZOMIB [Suspect]
     Indication: PLASMA CELL MYELOMA
     Dosage: 33.8 MILLIGRAM
     Route: 065
     Dates: start: 20110922, end: 20110923
  12. CARFILZOMIB [Suspect]
     Dosage: 45.6 MILLIGRAM
     Route: 065
     Dates: start: 20110929, end: 20120214
  13. CARFILZOMIB [Suspect]
     Dosage: 45.6 MILLIGRAM
     Route: 065
     Dates: start: 20120315, end: 20120316
  14. CARFILZOMIB [Suspect]
     Dosage: 33.8 MILLIGRAM
     Route: 065
     Dates: start: 20120416, end: 20120530
  15. CARFILZOMIB [Suspect]
     Dosage: 33.8 MILLIGRAM
     Route: 065
     Dates: start: 20120611, end: 20120717
  16. CARFILZOMIB [Suspect]
     Dosage: 33.8 MILLIGRAM
     Route: 065
     Dates: start: 20120806, end: 20120808
  17. CARFILZOMIB [Suspect]
     Route: 065
     Dates: end: 20130129
  18. ARTIFICIAL TEARS [Concomitant]
     Indication: KERATITIS
     Dosage: 1 APPLICATION
     Route: 061
     Dates: start: 20120131
  19. ASPIRIN [Concomitant]
     Indication: ANTICOAGULANT THERAPY
     Dosage: 325 MILLIGRAM
     Route: 048
     Dates: start: 20110920
  20. ASPIRIN [Concomitant]
     Indication: ANTIPLATELET THERAPY
  21. CIPRO [Concomitant]
     Indication: ANTIBIOTIC PROPHYLAXIS
     Dosage: 500 MILLIGRAM
     Route: 048
     Dates: start: 20110920
  22. DIPHENOXLATE W/ATROPINE [Concomitant]
     Indication: PROPHYLAXIS
     Dosage: 12 TABLET
     Route: 048
     Dates: start: 20120625, end: 20120625
  23. DIPHENOXLATE W/ATROPINE [Concomitant]
     Dosage: 6 TABLET
     Route: 048
     Dates: start: 20120626, end: 20120626
  24. HYDROCODONE [Concomitant]
     Indication: PAIN
     Dosage: 60 MILLIGRAM
     Route: 048
     Dates: start: 20111219
  25. LEVAQUIN [Concomitant]
     Indication: UPPER RESPIRATORY TRACT INFECTION
     Dosage: 500 MILLIGRAM
     Route: 048
     Dates: start: 20120514
  26. LYRICA [Concomitant]
     Indication: PAIN
     Dosage: 300 MILLIGRAM
     Route: 048
     Dates: start: 20091208
  27. MIRALAX [Concomitant]
     Indication: CONSTIPATION
     Dosage: 1PACK
     Route: 048
     Dates: start: 20091102
  28. MUCINEX [Concomitant]
     Indication: NASAL CONGESTION
     Dosage: 2 TABLET
     Route: 048
     Dates: start: 20091221
  29. MULTIVITAMIN [Concomitant]
     Indication: SUPPLEMENTATION THERAPY
     Dosage: 1 TABLET
     Route: 048
     Dates: start: 20100819
  30. ONDANSETRON HCL [Concomitant]
     Indication: NAUSEA
     Route: 041
     Dates: start: 20120625, end: 20120625
  31. ONDANSETRON HCL [Concomitant]
     Dosage: 32 MILLIGRAM
     Route: 041
     Dates: start: 20120625, end: 20120626
  32. PREVACID [Concomitant]
     Indication: PRODUCT USED FOR UNKNOWN INDICATION
     Dosage: 30 MILLIGRAM
     Route: 048
     Dates: start: 20090903
  33. RANITIDINE [Concomitant]
     Indication: GASTRITIS
     Dosage: 300 MILLIGRAM
     Route: 048
     Dates: start: 20111219
  34. SODIUM CHLORIDE [Concomitant]
     Indication: DEHYDRATION
     Dosage: 3000 MILLILITER
     Route: 041
     Dates: start: 20120625, end: 20120626
  35. SPIRIVA HANDIHALER [Concomitant]
     Indication: DYSPNOEA
     Dosage: 18 MICROGRAM
     Route: 045
     Dates: start: 20091230
  36. VALTREX [Concomitant]
     Indication: ANTIVIRAL PROPHYLAXIS
     Dosage: 500 MILLIGRAM
     Route: 048
     Dates: start: 20110920
  37. VITAMIN C PLUS CALCIUM [Concomitant]
     Indication: ROUTINE HEALTH MAINTENANCE
     Dosage: 2 TABLET
     Route: 048
     Dates: start: 20101118
  38. XANAX [Concomitant]
     Indication: ANXIETY
     Dosage: 1 MILLIGRAM
     Route: 048
     Dates: start: 20111024
  39. ZOLOFT [Concomitant]
     Indication: DEPRESSION
     Dosage: 50 MILLIGRAM
     Route: 048
     Dates: start: 20090903
  40. ZYRTEC [Concomitant]
     Indication: NASAL CONGESTION
     Dosage: 10 MILLIGRAM
     Route: 048
     Dates: start: 20111107
  41. LOMOTIL [Concomitant]
     Indication: DIARRHOEA
     Dosage: 2 TABLET
     Route: 048
     Dates: start: 20120625, end: 20120625
  42. DIURETICS [Concomitant]
     Indication: OEDEMA PERIPHERAL
     Route: 048
     Dates: start: 20111112
  43. ZOFRAN [Concomitant]
     Indication: NAUSEA
     Dosage: 32 MILLIGRAM
     Route: 041
     Dates: start: 20120625, end: 20120626

REACTIONS (2)
  - Colitis [Recovered/Resolved]
  - Abdominal pain [Recovered/Resolved]
